FAERS Safety Report 25131874 (Version 1)
Quarter: 2025Q1

REPORT INFORMATION
  Report Type: Report from Study
  Country: US (occurrence: US)
  Receive Date: 20250327
  Receipt Date: 20250327
  Transmission Date: 20250409
  Serious: Yes (Other)
  Sender: ABBVIE
  Company Number: US-ABBVIE-6195122

PATIENT
  Age: 70 Year
  Sex: Male

DRUGS (1)
  1. SKYRIZI [Suspect]
     Active Substance: RISANKIZUMAB-RZAA
     Indication: Crohn^s disease
     Route: 058
     Dates: start: 20241107

REACTIONS (5)
  - Stoma creation [Unknown]
  - Diarrhoea [Unknown]
  - Feeling hot [Unknown]
  - Gastroenteritis viral [Recovered/Resolved]
  - Stoma site oedema [Recovered/Resolved]

NARRATIVE: CASE EVENT DATE: 20250302
